FAERS Safety Report 23587391 (Version 3)
Quarter: 2024Q2

REPORT INFORMATION
  Report Type: Report from Study
  Country: PT (occurrence: PT)
  Receive Date: 20240301
  Receipt Date: 20240401
  Transmission Date: 20240715
  Serious: Yes (Other)
  Sender: FDA-Public Use
  Company Number: PT-ABBVIE-5657835

PATIENT
  Age: 79 Year
  Sex: Male

DRUGS (19)
  1. CARBIDOPA\LEVODOPA [Suspect]
     Active Substance: CARBIDOPA\LEVODOPA
     Indication: Parkinson^s disease
     Dosage: 20 MG + 5 MG, LAST ADMIN DATE 2023
     Route: 050
     Dates: start: 20230621
  2. CARBIDOPA\LEVODOPA [Suspect]
     Active Substance: CARBIDOPA\LEVODOPA
     Dosage: 20 MG + 5 MG (GASTRIC)
     Route: 050
     Dates: start: 20230921, end: 20240226
  3. CARBIDOPA\LEVODOPA [Suspect]
     Active Substance: CARBIDOPA\LEVODOPA
     Dosage: 20 MG + 5 MG (GASTRIC)?FREQUENCY TEXT: MORN:16CC;MAIN:5.8CC/H;EXTRA:7.7CC
     Route: 050
     Dates: start: 20240226
  4. CARBIDOPA\LEVODOPA [Suspect]
     Active Substance: CARBIDOPA\LEVODOPA
     Dosage: 20 MG + 5 MG?FREQUENCY TEXT: MORN:7.3CC;MAIN:4.3CC/H;EXTRA:1CC?FIRST ADMIN DATE 2023
     Route: 050
     Dates: end: 20230921
  5. MIRABEGRON [Concomitant]
     Active Substance: MIRABEGRON
     Indication: Product used for unknown indication
     Dosage: 1 CAPSULE?FORM STRENGTH: 25 MILLIGRAMS?START DATE TEXT- BEFORE DUODOPA?FREQUENCY TEXT: AT BREAKFAST
     Route: 065
  6. EDOXABAN TOSYLATE [Concomitant]
     Active Substance: EDOXABAN TOSYLATE
     Indication: Product used for unknown indication
     Dosage: 1 TABLET, BEFORE DUODOPA?FORM STRENGTH WAS 60 MILLIGRAMS
     Route: 065
  7. TUNELUX [Concomitant]
     Indication: Product used for unknown indication
     Dosage: FORM STRENGTH: 20 MG?BEFORE DUODOPA?FREQUENCY TEXT: AT BREAKFAST, EVERY OTHER DAY
     Route: 065
  8. AMANTADINE HYDROCHLORIDE [Concomitant]
     Active Substance: AMANTADINE HYDROCHLORIDE
     Indication: Product used for unknown indication
     Dosage: 1 TABLET?FORM STRENGTH WAS 100 MILLIGRAMS, AT BREAKFAST?START DATE TEXT: BEFORE DUODOPA?STOP DATE...
     Route: 065
  9. NEUROBION [Concomitant]
     Active Substance: CYANOCOBALAMIN\PYRIDOXINE\THIAMINE
     Indication: Product used for unknown indication
     Dosage: 1 TABLET?START DATE TEXT: BEFORE DUODOPA
     Route: 065
  10. MEMANTINE [Concomitant]
     Active Substance: MEMANTINE
     Indication: Product used for unknown indication
     Dosage: 2 TABLET?FORM STRENGTH WAS 10 MILLIGRAMS?AT BREAKFAST AND AT DINNER, BEFORE DUODOPA
     Route: 065
  11. RIVASTIGMINE [Concomitant]
     Active Substance: RIVASTIGMINE
     Indication: Product used for unknown indication
     Dosage: 13,3 MG/24H, BEFORE DUODOPA?1 PATCH DAILY
     Route: 062
  12. SINEMET CR [Concomitant]
     Active Substance: CARBIDOPA\LEVODOPA
     Indication: Product used for unknown indication
     Dosage: 200 MG + 50 MG?FREQUENCY TEXT: 1 TABLET AT BEDTIME?BEFORE DUODOPA
     Route: 065
  13. ZERA [Concomitant]
     Indication: Product used for unknown indication
     Dosage: 1 TABLET, BEFORE DUODOPA?FORM STRENGTH 20 MILLIGRAMS?FREQUENCY TEXT: AT BEDTIME
  14. RAMIPRIL [Concomitant]
     Active Substance: RAMIPRIL
     Indication: Product used for unknown indication
     Dosage: 1 TABLET, AT BREAKFAST?FORM STRENGTH WAS 5 MILLIGRAMS?BEFORE DUODOPA
     Route: 065
  15. JUTEO [Concomitant]
     Indication: Product used for unknown indication
     Dosage: 5 MG + 4 MG?BEFORE DUODOPA
     Route: 048
  16. RIVOTRIL [Concomitant]
     Active Substance: CLONAZEPAM
     Indication: Product used for unknown indication
     Dosage: 1 TABLET?FORM STRENGTH WAS 0.5 MILLIGRAMS?FREQUENCY TEXT: AT BEDTIME
     Route: 065
  17. PANTOPRAZOLE [Concomitant]
     Active Substance: PANTOPRAZOLE
     Indication: Product used for unknown indication
     Dosage: 1 TABLET?FORM STRENGTH WAS 20 MILLIGRAMS?BEFORE DUODOPA?AT FASTING
     Route: 065
  18. RIVASTIGMINE [Concomitant]
     Active Substance: RIVASTIGMINE
     Indication: Product used for unknown indication
     Dosage: 13,3 MG/24H?FREQUENCY TEXT: 1 PATCH DAILY
     Route: 062
  19. CYANOCOBALAMIN\FOLIC ACID\PYRIDOXINE HYDROCHLORIDE [Concomitant]
     Active Substance: CYANOCOBALAMIN\FOLIC ACID\PYRIDOXINE HYDROCHLORIDE
     Indication: Product used for unknown indication
     Dosage: FORM STRENGTH WAS 5 MILLIGRAMS?BEFORE DUODPA?1 TABLET AT LUNCH ON SATURDAYS + SUNDAYS
     Route: 065

REACTIONS (4)
  - Rib fracture [Unknown]
  - Chest injury [Unknown]
  - Fall [Recovered/Resolved]
  - Chest pain [Recovered/Resolved]

NARRATIVE: CASE EVENT DATE: 20240225
